FAERS Safety Report 6773973-X (Version None)
Quarter: 2010Q2

REPORT INFORMATION
  Report Type: 
  Country: None (occurrence: None)
  Receive Date: 20100615
  Receipt Date: 20100615
  Transmission Date: 20101027
  Serious: Yes (Other)
  Sender: FDA-Public Use
  Company Number: None

PATIENT
  Age: 74 Year
  Sex: Male
  Weight: 70 kg

DRUGS (10)
  1. TIKOSYN [Suspect]
     Indication: ATRIAL FIBRILLATION
     Dosage: 250 MCG TWICE DAILY ORALLY
     Route: 048
     Dates: start: 20100220
  2. LORAZEPAM [Concomitant]
  3. NORTRIPTYLINE [Concomitant]
  4. ASPIRIN [Concomitant]
  5. WARFARIN [Concomitant]
  6. FUROSEMIDE [Concomitant]
  7. LISINOPRIL [Concomitant]
  8. TAMSULOSIN HCL [Concomitant]
  9. POTASSIUM [Concomitant]
  10. CHOLESTYRAMINE [Concomitant]

REACTIONS (4)
  - ASTHENIA [None]
  - DYSKINESIA [None]
  - HYPOAESTHESIA [None]
  - MUSCLE SPASMS [None]
